FAERS Safety Report 21177828 (Version 3)
Quarter: 2025Q2

REPORT INFORMATION
  Report Type: Report from Study
  Country: US (occurrence: US)
  Receive Date: 20220805
  Receipt Date: 20250520
  Transmission Date: 20250717
  Serious: Yes (Other)
  Sender: ROCHE
  Company Number: US-ROCHE-3150032

PATIENT
  Age: 46 Year
  Sex: Female

DRUGS (25)
  1. ACTEMRA [Suspect]
     Active Substance: TOCILIZUMAB
     Indication: Rheumatoid arthritis
     Route: 058
  2. VENTOLIN HFA [Concomitant]
     Active Substance: ALBUTEROL SULFATE
     Route: 048
  3. VITAMIN C [Concomitant]
     Active Substance: ASCORBIC ACID
     Route: 048
  4. CARBOXYMETHYLCELLULOSE SODIUM [Concomitant]
     Active Substance: CARBOXYMETHYLCELLULOSE SODIUM
     Dosage: INSTILL1 DROP INTO BOTH EYES
     Route: 047
  5. COLACE [Concomitant]
     Active Substance: DOCUSATE SODIUM
     Route: 048
  6. CRANBERRY [Concomitant]
     Active Substance: CRANBERRY
     Route: 048
  7. CYMBALTA [Concomitant]
     Active Substance: DULOXETINE HYDROCHLORIDE
     Route: 048
  8. EVENING PRIMROSE OIL\HERBALS [Concomitant]
     Active Substance: EVENING PRIMROSE OIL\HERBALS
     Route: 048
  9. GABAPENTIN [Concomitant]
     Active Substance: GABAPENTIN
     Route: 048
  10. PLAQUENIL [Concomitant]
     Active Substance: HYDROXYCHLOROQUINE SULFATE
     Route: 048
  11. ATARAX [Concomitant]
     Active Substance: HYDROXYZINE HYDROCHLORIDE
     Route: 048
  12. MIRENA [Concomitant]
     Active Substance: LEVONORGESTREL
     Route: 015
  13. SYNTHROID [Concomitant]
     Active Substance: LEVOTHYROXINE SODIUM
     Dosage: 100 MCG
     Route: 048
  14. MOBIC [Concomitant]
     Active Substance: MELOXICAM
     Dosage: AS NEEDED
     Route: 048
  15. SINGULAIR [Concomitant]
     Active Substance: MONTELUKAST SODIUM
     Route: 048
  16. ZOFRAN [Concomitant]
     Active Substance: ONDANSETRON HYDROCHLORIDE
     Indication: Nausea
     Route: 048
  17. ZOFRAN [Concomitant]
     Active Substance: ONDANSETRON HYDROCHLORIDE
     Indication: Vomiting
  18. PERCOCET [Concomitant]
     Active Substance: ACETAMINOPHEN\OXYCODONE HYDROCHLORIDE
     Indication: Pain
     Route: 048
  19. PROTONIX (ENTERIC COATED) [Concomitant]
     Route: 048
  20. INDERAL [Concomitant]
     Active Substance: PROPRANOLOL HYDROCHLORIDE
     Route: 048
  21. SUDAFED [Concomitant]
     Active Substance: PSEUDOEPHEDRINE HYDROCHLORIDE
     Indication: Nasal congestion
     Route: 048
  22. ZANAFLEX [Concomitant]
     Active Substance: TIZANIDINE HYDROCHLORIDE
     Route: 048
  23. TOPAMAX [Concomitant]
     Active Substance: TOPIRAMATE
     Route: 048
  24. AMBIEN [Concomitant]
     Active Substance: ZOLPIDEM TARTRATE
     Route: 048
  25. ZYRTEC [Concomitant]
     Active Substance: CETIRIZINE HYDROCHLORIDE
     Route: 048

REACTIONS (15)
  - Metabolic dysfunction-associated steatohepatitis [Unknown]
  - Hyperlipidaemia [Unknown]
  - Rhinitis allergic [Unknown]
  - Complex regional pain syndrome [Unknown]
  - Migraine [Unknown]
  - Osteopenia [Unknown]
  - Apraxia [Unknown]
  - Fibromyalgia [Unknown]
  - Irritable bowel syndrome [Unknown]
  - IgG deficiency [Unknown]
  - Tricuspid valve incompetence [Unknown]
  - Hypothyroidism [Unknown]
  - Immunosuppression [Unknown]
  - Obesity [Unknown]
  - Insomnia [Unknown]
